FAERS Safety Report 6263361-7 (Version None)
Quarter: 2009Q3

REPORT INFORMATION
  Report Type: 
  Country: None (occurrence: None)
  Receive Date: 20090710
  Receipt Date: 20080805
  Transmission Date: 20100115
  Serious: No
  Sender: FDA-Public Use
  Company Number: A0738860A

PATIENT
  Age: 71 Year
  Sex: Female

DRUGS (7)
  1. FLOVENT [Suspect]
     Indication: ASTHMA
     Dosage: 2PUFF TWICE PER DAY
     Route: 055
     Dates: start: 20050701, end: 20080714
  2. XANAX [Concomitant]
  3. NYSTATIN [Concomitant]
  4. BETIMOL [Concomitant]
  5. LOZENGE [Concomitant]
  6. MAXZIDE [Concomitant]
  7. PROTONIX [Concomitant]

REACTIONS (2)
  - CANDIDIASIS [None]
  - INTRAOCULAR PRESSURE INCREASED [None]
